FAERS Safety Report 9414103 (Version 1)
Quarter: 2013Q3

REPORT INFORMATION
  Report Type: Spontaneous
  Country: SE (occurrence: None)
  Receive Date: 20130717
  Receipt Date: 20130717
  Transmission Date: 20140515
  Serious: Yes (Hospitalization)
  Sender: FDA-Public Use
  Company Number: AUR-APL-2013-05919

PATIENT
  Age: 87 Year
  Sex: Male

DRUGS (19)
  1. RAMIPRIL (RAMIPRIL) [Suspect]
     Indication: PRODUCT USED FOR UNKNOWN INDICATION
     Dosage: 1.5 MG, 1 D, UNKNOWN
  2. SPIRONOLACTONE (SPIRONOLACTONE) [Suspect]
     Indication: PRODUCT USED FOR UNKNOWN INDICATION
     Dates: start: 20130202
  3. FURIX [Suspect]
     Indication: PRODUCT USED FOR UNKNOWN INDICATION
     Dosage: 80 MG, 1 D, UNKNOWN
  4. ALLOPURINOL [Suspect]
     Indication: PRODUCT USED FOR UNKNOWN INDICATION
     Dosage: 200 MG, 1 D, UNKNOWN
  5. SPIRIVA (TIOTROPIUM BROMIDE) [Concomitant]
  6. OMEPRAZOLE (OMEPRAZOLE) [Concomitant]
  7. BISOPROLOL (BISOPROLOL) [Concomitant]
  8. ZOPICLONE (ZOPICLONE) [Concomitant]
  9. FOLACIN (FOLIC ACID) [Concomitant]
  10. CLOPIDOGREL (CLOPIDOGREL) [Concomitant]
  11. PANODIL (PARACETAMOL) [Concomitant]
  12. BEHEPAN (CYANOCOBALAMIN) [Concomitant]
  13. IMDUR (ISOSORBIDE MONONITRATE) [Concomitant]
  14. TROMBYL (ACETYLSALICYLIC ACID) [Concomitant]
  15. PROSCAR [Concomitant]
  16. LACTULOSE (LACTULOSE) [Concomitant]
  17. ACETYLCYSTEINE (ACETYLCYSTEINE) [Concomitant]
  18. SIFROL (PRAMIPEXOLE DIHYDROCHLORIDE) [Concomitant]
  19. GLYTRIN (GLYCERYL TRINITRATE) [Concomitant]

REACTIONS (4)
  - Malaise [None]
  - Dehydration [None]
  - Renal failure acute [None]
  - Blood creatinine increased [None]
